FAERS Safety Report 5926009-4 (Version None)
Quarter: 2008Q3

REPORT INFORMATION
  Report Type: 
  Country: None (occurrence: None)
  Receive Date: 20080924
  Receipt Date: 20080624
  Transmission Date: 20090109
  Serious: Yes (Other)
  Sender: FDA-Public Use
  Company Number: US-WYE-H03130008

PATIENT
  Age: 54 Year
  Sex: Male
  Weight: 99.88 kg

DRUGS (7)
  1. TORISEL [Suspect]
     Indication: RENAL CANCER
     Dosage: 25 MG 1X 1 WK, INTRAVENOUS
     Route: 042
     Dates: start: 20080304
  2. ZOMETA [Concomitant]
  3. BENADRYL [Concomitant]
  4. OXYCODONE HCL [Concomitant]
  5. HYDROCHLOROTHIAZIDE [Concomitant]
  6. VITAMIN D [Concomitant]
  7. NEUTRA-PHOS (POTASSIUM PHOSPHATE DIBASIC/POTASSIUM PHOSPHATE MONOBASIC [Concomitant]

REACTIONS (4)
  - BACK PAIN [None]
  - CHEST DISCOMFORT [None]
  - FEELING HOT [None]
  - HYPERSENSITIVITY [None]
